FAERS Safety Report 8237286-1 (Version None)
Quarter: 2012Q1

REPORT INFORMATION
  Report Type: 
  Country: None (occurrence: None)
  Receive Date: 20120327
  Receipt Date: 20120322
  Transmission Date: 20120608
  Serious: Yes (Other)
  Sender: FDA-Public Use
  Company Number: CA-B.I. PHARMACEUTICALS,INC./RIDGEFIELD-2012-CN-00635CN

PATIENT
  Age: 73 Year
  Sex: Male

DRUGS (7)
  1. PRADAXA [Suspect]
     Indication: CEREBROVASCULAR ACCIDENT PROPHYLAXIS
     Dosage: 220 MG
     Route: 048
     Dates: start: 20110801
  2. NITROGLYCERIN [Concomitant]
  3. PRADAXA [Suspect]
     Indication: ATRIAL FIBRILLATION
  4. LIPITOR [Concomitant]
  5. BISOPROLOL FUMARATE [Concomitant]
  6. DIGOXIN [Concomitant]
  7. RAMIPRIL [Concomitant]

REACTIONS (4)
  - INSOMNIA [None]
  - PRURITUS GENERALISED [None]
  - SQUAMOUS CELL CARCINOMA OF SKIN [None]
  - OEDEMA PERIPHERAL [None]
